FAERS Safety Report 9580673 (Version 1)
Quarter: 2013Q3

REPORT INFORMATION
  Report Type: Spontaneous
  Country: US (occurrence: None)
  Receive Date: 20130916
  Receipt Date: 20130916
  Transmission Date: 20140515
  Serious: Yes (Other)
  Sender: FDA-Public Use
  Company Number: JPI-P-030640

PATIENT
  Age: 32 Year
  Sex: Female
  Weight: 54.43 kg

DRUGS (5)
  1. XYREM (500 MILLIGRAM/MILLILITERS, SOLUTION) (SODIUM OXYBATE) [Suspect]
     Indication: NARCOLEPSY
     Dosage: 4.45 GM (2.25 GM, 2 IN 1 D), ORAL
     Route: 048
     Dates: start: 20130302, end: 20130305
  2. MILNACIPRAN HCL [Concomitant]
  3. AMPHETAMINE, DEXTROAMPHETAMINE MIXED SALTS [Concomitant]
  4. DULOXETINE HYDROCHLORIDE [Concomitant]
  5. IBUPROFEN [Concomitant]

REACTIONS (8)
  - Dyspnoea [None]
  - Blood pressure increased [None]
  - Oxygen saturation decreased [None]
  - Dysphagia [None]
  - Red blood cell count decreased [None]
  - Unevaluable investigation [None]
  - Hepatic enzyme increased [None]
  - Tinnitus [None]
